FAERS Safety Report 5843168-2 (Version None)
Quarter: 2008Q3

REPORT INFORMATION
  Report Type: 
  Country: None (occurrence: None)
  Receive Date: 20080812
  Receipt Date: 20080812
  Transmission Date: 20090109
  Serious: Yes (Other)
  Sender: FDA-Public Use
  Company Number: None

PATIENT
  Age: 54 Year
  Sex: Female
  Weight: 56.6996 kg

DRUGS (1)
  1. CRESTOR [Suspect]
     Indication: BLOOD CHOLESTEROL INCREASED
     Dosage: 10 MG 1X DAILY PO, 3 - 4 WEEKS
     Route: 048
     Dates: start: 20080610, end: 20080711

REACTIONS (6)
  - ABDOMINAL PAIN UPPER [None]
  - ACTIVITIES OF DAILY LIVING IMPAIRED [None]
  - ASTHENIA [None]
  - HEADACHE [None]
  - MYALGIA [None]
  - SIMILAR REACTION ON PREVIOUS EXPOSURE TO DRUG [None]
